FAERS Safety Report 17216934 (Version 2)
Quarter: 2022Q1

REPORT INFORMATION
  Report Type: Spontaneous
  Country: CA (occurrence: CA)
  Receive Date: 20191231
  Receipt Date: 20220302
  Transmission Date: 20220424
  Serious: Yes (Hospitalization, Other)
  Sender: FDA-Public Use
  Company Number: CA-AUROBINDO-AUR-APL-2019-009843

PATIENT
  Age: 68 Year
  Sex: Female

DRUGS (36)
  1. CANDESARTAN [Suspect]
     Active Substance: CANDESARTAN
     Indication: Cardiomyopathy
     Dosage: 16 MILLIGRAM, ONCE A DAY
     Route: 048
  2. CANDESARTAN [Suspect]
     Active Substance: CANDESARTAN
     Indication: Cardiac failure
  3. CANDESARTAN [Suspect]
     Active Substance: CANDESARTAN
     Indication: Cardiac failure chronic
  4. CARVEDILOL [Suspect]
     Active Substance: CARVEDILOL
     Indication: Cardiac failure
     Dosage: 12.5 MILLIGRAM, TWO TIMES A DAY
     Route: 065
  5. CARVEDILOL [Suspect]
     Active Substance: CARVEDILOL
     Indication: Cardiac failure
     Dosage: 25 MILLIGRAM
     Route: 065
  6. MELPHALAN [Suspect]
     Active Substance: MELPHALAN
     Indication: Mantle cell lymphoma
     Dosage: 0.5 MILLIGRAM, ONCE A DAY
     Route: 065
  7. BISOPROLOL [Suspect]
     Active Substance: BISOPROLOL
     Indication: Cardiac failure chronic
     Dosage: 5 MILLIGRAM, ONCE A DAY
     Route: 065
  8. BISOPROLOL [Suspect]
     Active Substance: BISOPROLOL
     Indication: Cardiomyopathy
     Dosage: 10 MILLIGRAM, ONCE A DAY
     Route: 065
  9. BISOPROLOL [Suspect]
     Active Substance: BISOPROLOL
     Indication: Cardiac failure
  10. DOXORUBICIN [Suspect]
     Active Substance: DOXORUBICIN
     Indication: Mantle cell lymphoma
     Dosage: UNK
     Route: 042
  11. EPLERENONE [Suspect]
     Active Substance: EPLERENONE
     Indication: Cardiac failure
     Dosage: 25 MILLIGRAM, ONCE A DAY
     Route: 065
  12. ENALAPRIL [Suspect]
     Active Substance: ENALAPRIL
     Indication: Cardiac failure
     Dosage: 5 MILLIGRAM
     Route: 065
  13. EPIRUBICIN [Suspect]
     Active Substance: EPIRUBICIN
     Indication: Hormone receptor positive breast cancer
     Dosage: UNK
     Route: 065
  14. FUROSEMIDE [Suspect]
     Active Substance: FUROSEMIDE
     Indication: Cardiac failure chronic
     Dosage: 40 MILLIGRAM, ONCE A DAY
     Route: 065
  15. FUROSEMIDE [Suspect]
     Active Substance: FUROSEMIDE
     Indication: Cardiac failure
     Dosage: 20 MILLIGRAM
     Route: 065
  16. FUROSEMIDE [Suspect]
     Active Substance: FUROSEMIDE
     Indication: Cardiomyopathy
  17. NITRO-DUR [Suspect]
     Active Substance: NITROGLYCERIN
     Indication: Cardiac failure chronic
     Dosage: 0.4 MILLIGRAM, EVERY HOUR
     Route: 065
  18. NITRO-DUR [Suspect]
     Active Substance: NITROGLYCERIN
     Indication: Cardiomyopathy
  19. NITRO-DUR [Suspect]
     Active Substance: NITROGLYCERIN
     Indication: Cardiac failure
  20. PERINDOPRIL [Suspect]
     Active Substance: PERINDOPRIL
     Indication: Cardiac failure chronic
     Dosage: 4 MILLIGRAM, ONCE A DAY
     Route: 065
  21. PERINDOPRIL [Suspect]
     Active Substance: PERINDOPRIL
     Indication: Cardiomyopathy
  22. PERINDOPRIL [Suspect]
     Active Substance: PERINDOPRIL
     Indication: Cardiac failure
  23. SPIRONOLACTONE [Suspect]
     Active Substance: SPIRONOLACTONE
     Indication: Cardiac failure chronic
     Dosage: 25 MILLIGRAM, ONCE A DAY
     Route: 065
  24. SPIRONOLACTONE [Suspect]
     Active Substance: SPIRONOLACTONE
     Indication: Cardiac failure
  25. SPIRONOLACTONE [Suspect]
     Active Substance: SPIRONOLACTONE
     Indication: Cardiomyopathy
  26. CYCLOPHOSPHAMIDE [Concomitant]
     Active Substance: CYCLOPHOSPHAMIDE
     Indication: Hormone receptor positive breast cancer
     Dosage: UNK
     Route: 065
  27. CYCLOPHOSPHAMIDE [Concomitant]
     Active Substance: CYCLOPHOSPHAMIDE
     Indication: Mantle cell lymphoma
  28. FLUOROURACIL [Concomitant]
     Active Substance: FLUOROURACIL
     Indication: Hormone receptor positive breast cancer
     Dosage: UNK
     Route: 065
  29. LETROZOLE [Concomitant]
     Active Substance: LETROZOLE
     Indication: Hormone receptor positive breast cancer
     Dosage: UNK
     Route: 065
  30. TAMOXIFEN [Concomitant]
     Active Substance: TAMOXIFEN
     Indication: Hormone receptor positive breast cancer
     Dosage: UNK
     Route: 065
  31. CISPLATIN [Concomitant]
     Active Substance: CISPLATIN
     Indication: Mantle cell lymphoma
     Dosage: UNK
     Route: 065
  32. CYTARABINE [Concomitant]
     Active Substance: CYTARABINE
     Indication: Mantle cell lymphoma
     Dosage: 0.5 MILLIGRAM, ONCE A DAY
     Route: 037
  33. DEXAMETHASONE [Concomitant]
     Active Substance: DEXAMETHASONE
     Indication: Mantle cell lymphoma
     Dosage: 0.5 MILLIGRAM, ONCE A DAY
     Route: 065
  34. PREDNISONE [Concomitant]
     Active Substance: PREDNISONE
     Indication: Mantle cell lymphoma
     Dosage: 0.5 MILLIGRAM, ONCE A DAY
     Route: 065
  35. RITUXIMAB [Concomitant]
     Active Substance: RITUXIMAB
     Indication: Mantle cell lymphoma
     Dosage: 0.5 MILLIGRAM, ONCE A DAY
     Route: 065
  36. VINCRISTINE [Concomitant]
     Active Substance: VINCRISTINE
     Indication: Mantle cell lymphoma
     Dosage: 0.5 MILLIGRAM, ONCE A DAY
     Route: 065

REACTIONS (14)
  - Cardiac failure congestive [Unknown]
  - Cardiomyopathy [Recovered/Resolved]
  - Hypotension [Unknown]
  - Pulmonary arterial pressure increased [Unknown]
  - Hypovolaemia [Unknown]
  - Left ventricular dilatation [Unknown]
  - Oedema peripheral [Unknown]
  - Drug ineffective [Unknown]
  - Cardiac failure [Unknown]
  - Hypertension [Recovered/Resolved]
  - Off label use [Recovered/Resolved]
  - Product use in unapproved indication [Recovered/Resolved]
  - Cough [Recovered/Resolved]
  - Dyspnoea [Recovered/Resolved]
